FAERS Safety Report 5081665-0 (Version None)
Quarter: 2006Q3

REPORT INFORMATION
  Report Type: 
  Country: None (occurrence: None)
  Receive Date: 20060816
  Receipt Date: 20060809
  Transmission Date: 20061208
  Serious: Yes (Other)
  Sender: FDA-Public Use
  Company Number: PHNU2006DE02751

PATIENT
  Sex: Female

DRUGS (5)
  1. FORADIL [Suspect]
     Indication: ASTHMA
     Dates: end: 20051001
  2. FORADIL [Suspect]
     Dosage: UNK, UNK
     Dates: start: 20060601, end: 20060601
  3. BERODUAL [Concomitant]
     Indication: ASTHMA
  4. ALVESCO [Concomitant]
     Indication: ASTHMA
     Dosage: 80 UG/DAY
  5. ESTROGENS [Concomitant]
     Indication: HORMONE REPLACEMENT THERAPY

REACTIONS (4)
  - DEPRESSION [None]
  - GENERAL PHYSICAL HEALTH DETERIORATION [None]
  - SUICIDAL IDEATION [None]
  - VERTIGO [None]
